FAERS Safety Report 24882294 (Version 1)
Quarter: 2025Q1

REPORT INFORMATION
  Report Type: Spontaneous
  Country: US (occurrence: US)
  Receive Date: 20250124
  Receipt Date: 20250124
  Transmission Date: 20250408
  Serious: Yes (Other)
  Sender: ALEMBIC
  Company Number: US-ALEMBIC PHARMACUETICALS LIMITED-2025SCAL000043

PATIENT

DRUGS (1)
  1. DORZOLAMIDE HYDROCHLORIDE [Suspect]
     Active Substance: DORZOLAMIDE HYDROCHLORIDE
     Indication: Open angle glaucoma
     Route: 061

REACTIONS (3)
  - Choroidal effusion [Recovered/Resolved]
  - Vision blurred [Recovering/Resolving]
  - Eye irritation [Unknown]
